FAERS Safety Report 6433439-3 (Version None)
Quarter: 2009Q4

REPORT INFORMATION
  Report Type: 
  Country: None (occurrence: None)
  Receive Date: 20091106
  Receipt Date: 20091106
  Transmission Date: 20100525
  Serious: Yes (Hospitalization)
  Sender: FDA-Public Use
  Company Number: None

PATIENT
  Age: 61 Year
  Sex: Male
  Weight: 145.6 kg

DRUGS (3)
  1. AMIKACIN [Suspect]
     Indication: ENTEROBACTER INFECTION
     Dosage: 500MG EVERY 12 HOURS IV
     Route: 042
     Dates: start: 20090922, end: 20090925
  2. AMIKACIN [Suspect]
     Indication: URINARY TRACT INFECTION STAPHYLOCOCCAL
     Dosage: 500MG EVERY 12 HOURS IV
     Route: 042
     Dates: start: 20090922, end: 20090925
  3. AMIKACIN [Suspect]
     Indication: URINARY TRACT INFECTION STAPHYLOCOCCAL
     Dosage: 800 MG EVERY 24 HOURS IV
     Route: 042
     Dates: start: 20090925, end: 20090928

REACTIONS (3)
  - DIALYSIS [None]
  - DYSPNOEA [None]
  - RENAL FAILURE ACUTE [None]
